FAERS Safety Report 9725803 (Version 1)
Quarter: 2013Q4

REPORT INFORMATION
  Report Type: Spontaneous
  Country: US (occurrence: None)
  Receive Date: 20131129
  Receipt Date: 20131129
  Transmission Date: 20140711
  Serious: Yes (Death)
  Sender: FDA-Public Use
  Company Number: SYM-2013-13205

PATIENT
  Age: 54 Year
  Sex: Male

DRUGS (1)
  1. XENAZINE (TETRABENAZINE) (12.5 MILLIGRAM, TABLET) (TETRABENAZINE) [Suspect]
     Indication: PRODUCT USED FOR UNKNOWN INDICATION
     Dosage: 12.5 MG, 4 IN 1 D, ORAL
     Route: 048
     Dates: start: 20120403, end: 20130920

REACTIONS (1)
  - Death [None]
